FAERS Safety Report 13160672 (Version 2)
Quarter: 2017Q1

REPORT INFORMATION
  Report Type: Spontaneous
  Country: CA (occurrence: CA)
  Receive Date: 20170129
  Receipt Date: 20170329
  Transmission Date: 20170428
  Serious: Yes (Other)
  Sender: FDA-Public Use
  Company Number: CA-ROCHE-1885464

PATIENT
  Age: 64 Year

DRUGS (3)
  1. ACTEMRA [Suspect]
     Active Substance: TOCILIZUMAB
     Dosage: INFUSION 33
     Route: 042
     Dates: start: 20170125
  2. ACTEMRA [Suspect]
     Active Substance: TOCILIZUMAB
     Dosage: INITIAL DOSING DETAILS NOT PROVIDED.
     Route: 042
     Dates: start: 20140714
  3. ACTEMRA [Suspect]
     Active Substance: TOCILIZUMAB
     Indication: PRODUCT USED FOR UNKNOWN INDICATION
     Dosage: INFUSION 35
     Route: 042
     Dates: start: 20170322

REACTIONS (3)
  - Pain [Unknown]
  - Infusion related reaction [Unknown]
  - Arthralgia [Not Recovered/Not Resolved]

NARRATIVE: CASE EVENT DATE: 20170125
